FAERS Safety Report 16686380 (Version 1)
Quarter: 2019Q3

REPORT INFORMATION
  Report Type: Spontaneous
  Country: US (occurrence: US)
  Receive Date: 20190809
  Receipt Date: 20190809
  Transmission Date: 20191004
  Serious: No
  Sender: FDA-Public Use
  Company Number: US-GLAXOSMITHKLINE-US2019139578

PATIENT
  Sex: Female

DRUGS (1)
  1. TRELEGY ELLIPTA [Suspect]
     Active Substance: FLUTICASONE FUROATE\UMECLIDINIUM BROMIDE\VILANTEROL TRIFENATATE
     Indication: ASTHMA
     Dosage: 1 PUFF(S), QD 100/62.5/25
     Route: 055
     Dates: start: 20190727

REACTIONS (4)
  - Asthenia [Unknown]
  - Drug ineffective [Unknown]
  - Tremor [Recovered/Resolved]
  - Nervousness [Recovered/Resolved]
